FAERS Safety Report 6286591-7 (Version None)
Quarter: 2009Q3

REPORT INFORMATION
  Report Type: 
  Country: None (occurrence: None)
  Receive Date: 20090728
  Receipt Date: 20090715
  Transmission Date: 20100115
  Serious: Yes (Life-Threatening, Hospitalization)
  Sender: FDA-Public Use
  Company Number: PHHY2009BE29003

PATIENT
  Sex: Male

DRUGS (3)
  1. LEPONEX [Suspect]
     Indication: PSYCHOTIC DISORDER
     Dosage: 250 MG/DAY
     Route: 048
     Dates: start: 20090626, end: 20090710
  2. ASPEGIC 1000 [Concomitant]
     Indication: PYREXIA
  3. CLOPIXOL [Concomitant]
     Indication: PSYCHOTIC DISORDER

REACTIONS (11)
  - CARDIOGENIC SHOCK [None]
  - CHEST PAIN [None]
  - DYSPNOEA [None]
  - EJECTION FRACTION DECREASED [None]
  - FATIGUE [None]
  - INFLAMMATION [None]
  - MALAISE [None]
  - MYOCARDITIS [None]
  - PYREXIA [None]
  - TACHYCARDIA [None]
  - VENTRICULAR DYSFUNCTION [None]
